FAERS Safety Report 18565573 (Version 1)
Quarter: 2020Q4

REPORT INFORMATION
  Report Type: Spontaneous
  Country: US (occurrence: US)
  Receive Date: 20201201
  Receipt Date: 20201201
  Transmission Date: 20210114
  Serious: No
  Sender: FDA-Public Use
  Company Number: None

PATIENT
  Sex: Female

DRUGS (4)
  1. MELOXICAM 7.5 MG TABLET [Concomitant]
     Active Substance: MELOXICAM
  2. XELJANZ [Suspect]
     Active Substance: TOFACITINIB CITRATE
     Indication: RHEUMATOID ARTHRITIS
     Route: 048
     Dates: start: 20200914
  3. HUMIRA [Concomitant]
     Active Substance: ADALIMUMAB
     Dates: start: 20200720, end: 20200914
  4. HYDROXYZ PAM 25 MG CAP [Concomitant]

REACTIONS (2)
  - Therapy interrupted [None]
  - Surgery [None]
